FAERS Safety Report 8099191-3 (Version None)
Quarter: 2012Q1

REPORT INFORMATION
  Report Type: 
  Country: None (occurrence: None)
  Receive Date: 20120129
  Receipt Date: 20111004
  Transmission Date: 20120608
  Serious: No
  Sender: FDA-Public Use
  Company Number: US-ABBOTT-11P-163-0860909-00

PATIENT
  Sex: Female
  Weight: 110.32 kg

DRUGS (9)
  1. ULTRAM [Concomitant]
     Indication: PAIN
  2. ARIMIDEX [Concomitant]
     Indication: BREAST CANCER
  3. DILTIAZEM [Concomitant]
     Indication: HYPERTENSION
  4. GABAPENTIN [Concomitant]
     Indication: SLEEP DISORDER THERAPY
  5. CYMBALTA [Concomitant]
     Indication: DEPRESSION
  6. NEURONTIN [Concomitant]
     Indication: PRODUCT USED FOR UNKNOWN INDICATION
  7. HUMIRA [Suspect]
     Indication: PSORIASIS
     Route: 058
     Dates: start: 20110706
  8. LIVALOL [Concomitant]
     Indication: BLOOD CHOLESTEROL INCREASED
  9. CELEXA [Concomitant]
     Indication: PRODUCT USED FOR UNKNOWN INDICATION

REACTIONS (12)
  - INFECTED BITES [None]
  - GASTROENTERITIS VIRAL [None]
  - HEADACHE [None]
  - DYSKINESIA [None]
  - NASOPHARYNGITIS [None]
  - RASH [None]
  - DIZZINESS [None]
  - ABDOMINAL PAIN UPPER [None]
  - LABYRINTHITIS [None]
  - DIARRHOEA [None]
  - OEDEMA PERIPHERAL [None]
  - ARTHRITIS [None]
